FAERS Safety Report 9837920 (Version 2)
Quarter: 2014Q2

REPORT INFORMATION
  Report Type: Spontaneous
  Country: US (occurrence: None)
  Receive Date: 20131205
  Receipt Date: 20140416
  Transmission Date: 20141212
  Serious: Yes (Disabling)
  Sender: FDA-Public Use
  Company Number: 163-POMAL-13094099

PATIENT
  Age: 63 Year
  Sex: Female
  Weight: 74.84 kg

DRUGS (11)
  1. POMALYST [Suspect]
     Indication: PLASMA CELL MYELOMA
     Route: 048
     Dates: start: 20130912, end: 20131009
  2. ZOMETA (ZOLENDRONIC ACID) [Concomitant]
  3. ASA (ACETYLSALICYLIC ACID) [Concomitant]
  4. METOPROLOL (METOPROLOL) [Concomitant]
  5. PREDNISONE (PREDNISONE) [Concomitant]
  6. CENTRUM (CENTRUM) (TABLETS) [Concomitant]
  7. FISH OIL (FISH OIL) [Concomitant]
  8. VIT D3 (COLECALCIFEROL) [Concomitant]
  9. CALTRATE (CALCIUM CARBONATE) [Concomitant]
  10. COLACE (DOCUSATE SODIUM) [Concomitant]
  11. PRILOSEC (OMEPRAZOLE) [Concomitant]

REACTIONS (5)
  - Hypoaesthesia [None]
  - Tenderness [None]
  - Sciatica [None]
  - Dizziness [None]
  - Feeling cold [None]
